FAERS Safety Report 24710688 (Version 1)
Quarter: 2024Q4

REPORT INFORMATION
  Report Type: Spontaneous
  Country: US (occurrence: US)
  Receive Date: 20241209
  Receipt Date: 20241209
  Transmission Date: 20250115
  Serious: No
  Sender: BOEHRINGER INGELHEIM
  Company Number: US-Komodo Health-a23aa000004YkHRAA0

PATIENT
  Age: 73 Year
  Sex: Female

DRUGS (6)
  1. MICARDIS [Suspect]
     Active Substance: TELMISARTAN
     Indication: Blood pressure measurement
     Dates: start: 2004
  2. PANTOPRAZOLE [Concomitant]
     Active Substance: PANTOPRAZOLE
     Indication: Product used for unknown indication
  3. HYDROCHLOROTHIAZIDE [Concomitant]
     Active Substance: HYDROCHLOROTHIAZIDE
     Indication: Product used for unknown indication
  4. TELMISARTAN [Concomitant]
     Active Substance: TELMISARTAN
     Indication: Product used for unknown indication
  5. LISINOPRIL [Concomitant]
     Active Substance: LISINOPRIL
     Indication: Product used for unknown indication
  6. SOTALOL [Concomitant]
     Active Substance: SOTALOL
     Indication: Product used for unknown indication

REACTIONS (10)
  - Vomiting [Recovered/Resolved]
  - Diarrhoea [Unknown]
  - Gait disturbance [Recovered/Resolved]
  - Asthenia [Unknown]
  - Fall [Recovered/Resolved]
  - Gastrooesophageal reflux disease [Recovered/Resolved]
  - Limb discomfort [Recovered/Resolved]
  - Muscle twitching [Recovered/Resolved]
  - Insomnia [Recovered/Resolved]
  - Dizziness [Recovered/Resolved]
